FAERS Safety Report 21232200 (Version 2)
Quarter: 2022Q3

REPORT INFORMATION
  Report Type: Spontaneous
  Country: US (occurrence: US)
  Receive Date: 20220819
  Receipt Date: 20220825
  Transmission Date: 20221026
  Serious: No
  Sender: FDA-Public Use
  Company Number: US-GLAXOSMITHKLINE-USCH2022029044

PATIENT

DRUGS (1)
  1. GLYCERIN\SORBITOL [Suspect]
     Active Substance: GLYCERIN\SORBITOL
     Indication: Dental cleaning
     Dosage: UNK
     Dates: start: 2022

REACTIONS (2)
  - Dental caries [Unknown]
  - Drug effect less than expected [Unknown]

NARRATIVE: CASE EVENT DATE: 20220101
